FAERS Safety Report 9859021 (Version 2)
Quarter: 2014Q2

REPORT INFORMATION
  Report Type: Spontaneous
  Country: JP (occurrence: JP)
  Receive Date: 20140131
  Receipt Date: 20140402
  Transmission Date: 20141212
  Serious: Yes (Other)
  Sender: FDA-Public Use
  Company Number: JP-PFIZER INC-2014029848

PATIENT
  Age: 80 Year
  Sex: Female

DRUGS (5)
  1. LYRICA [Suspect]
     Indication: SCIATICA
     Dosage: 75 MG DAILY
     Route: 048
     Dates: start: 20130809
  2. CELECOX [Concomitant]
     Dosage: 200 MG, DAILY
     Route: 048
  3. ONE-ALPHA [Concomitant]
  4. ASPARA-CA [Concomitant]
  5. OPALMON [Concomitant]

REACTIONS (1)
  - Macular oedema [Unknown]
